FAERS Safety Report 24701653 (Version 3)
Quarter: 2025Q4

REPORT INFORMATION
  Report Type: Report from Study
  Country: CO (occurrence: CO)
  Receive Date: 20241205
  Receipt Date: 20251219
  Transmission Date: 20260117
  Serious: Yes (Hospitalization, Other)
  Sender: ROCHE
  Company Number: CO-002147023-NVSC2021CO251417

PATIENT
  Age: 64 Year
  Sex: Female
  Weight: 72 kg

DRUGS (5)
  1. XOLAIR [Suspect]
     Active Substance: OMALIZUMAB
     Indication: Asthma
     Dosage: 300 MG, QMO
     Route: 058
     Dates: start: 20150623
  2. ATORVASTATIN [Suspect]
     Active Substance: ATORVASTATIN
     Indication: Blood triglycerides increased
     Dosage: 1 DOSAGE FORM, QD 1 OF 40 MG
  3. MONTELUKAST [Concomitant]
     Active Substance: MONTELUKAST
     Indication: Product used for unknown indication
     Dosage: UNK
  4. ALBUTEROL [Concomitant]
     Active Substance: ALBUTEROL
     Indication: Asthma
     Route: 055
  5. SERETIDE [Concomitant]
     Active Substance: FLUTICASONE PROPIONATE\SALMETEROL XINAFOATE
     Indication: Asthma
     Dosage: UNK
     Route: 055

REACTIONS (16)
  - Asthmatic crisis [Recovering/Resolving]
  - Dengue fever [Recovering/Resolving]
  - Pyrexia [Recovering/Resolving]
  - Pain [Not Recovered/Not Resolved]
  - Platelet count decreased [Recovering/Resolving]
  - Choking [Unknown]
  - Malaise [Not Recovered/Not Resolved]
  - Bronchial disorder [Not Recovered/Not Resolved]
  - Cough [Not Recovered/Not Resolved]
  - Headache [Not Recovered/Not Resolved]
  - Illness [Unknown]
  - General physical health deterioration [Unknown]
  - Dyspnoea [Not Recovered/Not Resolved]
  - Gait disturbance [Unknown]
  - Influenza [Unknown]
  - Tonsillitis [Unknown]
